FAERS Safety Report 21665532 (Version 1)
Quarter: 2022Q4

REPORT INFORMATION
  Report Type: Spontaneous
  Country: US (occurrence: US)
  Receive Date: 20221201
  Receipt Date: 20221201
  Transmission Date: 20230113
  Serious: No
  Sender: FDA-Public Use
  Company Number: US-APOTEX-2022AP008864

PATIENT
  Age: 9 Month
  Sex: Male

DRUGS (4)
  1. BUSULFAN [Suspect]
     Active Substance: BUSULFAN
     Indication: Bone marrow conditioning regimen
     Dosage: 1 MILLIGRAM/KILOGRAM, Q.6H FOR 12 DOSES
     Route: 042
  2. MELPHALAN [Suspect]
     Active Substance: MELPHALAN
     Indication: Bone marrow conditioning regimen
     Dosage: 100 MILLIGRAM/SQ. METER
     Route: 042
  3. LAPINE T-LYMPHOCYTE IMMUNE GLOBULIN [Suspect]
     Active Substance: LAPINE T-LYMPHOCYTE IMMUNE GLOBULIN
     Indication: Bone marrow conditioning regimen
     Dosage: 4.5 MILLIGRAM/KILOGRAM
     Route: 042
  4. FLUDARABINE [Suspect]
     Active Substance: FLUDARABINE PHOSPHATE
     Indication: Bone marrow conditioning regimen
     Dosage: 30 MILLIGRAM/SQ. METER
     Route: 042

REACTIONS (1)
  - Mucosal inflammation [Unknown]
